FAERS Safety Report 9501921 (Version 1)
Quarter: 2013Q3

REPORT INFORMATION
  Report Type: Spontaneous
  Country: GB (occurrence: GB)
  Receive Date: 20130905
  Receipt Date: 20130905
  Transmission Date: 20140515
  Serious: Yes (Other)
  Sender: FDA-Public Use
  Company Number: GB-WATSON-2013-15653

PATIENT
  Sex: 0

DRUGS (2)
  1. OMEPRAZOLE (UNKNOWN) [Suspect]
     Indication: DYSPEPSIA
     Dosage: 20 MG, UNK
     Route: 048
     Dates: start: 20070316, end: 20130812
  2. FELODIPINE [Suspect]
     Indication: HYPERTENSION
     Dosage: 5 MG MILLIGRAM(S) 1 TIMES PER 1 DAY(S) FOR 419 DAY(S)
     Route: 048
     Dates: start: 20071109

REACTIONS (1)
  - Gynaecomastia [Unknown]
